FAERS Safety Report 4729130-1 (Version None)
Quarter: 2005Q3

REPORT INFORMATION
  Report Type: 
  Country: None (occurrence: None)
  Receive Date: 20050729
  Receipt Date: 20040603
  Transmission Date: 20060218
  Serious: No
  Sender: FDA-Public Use
  Company Number: US-GLAXOSMITHKLINE-A0513269A

PATIENT
  Age: 62 Year
  Sex: Female

DRUGS (14)
  1. IMITREX [Suspect]
     Indication: MIGRAINE
     Dosage: 100MG VARIABLE DOSE
     Route: 048
     Dates: end: 20040603
  2. ATROVENT [Concomitant]
  3. FLOVENT [Concomitant]
  4. SEREVENT [Concomitant]
  5. ALBUTEROL [Concomitant]
  6. SOMA [Concomitant]
  7. PAXIL [Concomitant]
  8. SINGULAIR [Concomitant]
  9. LIQUIBID-D [Concomitant]
  10. KLONOPIN [Concomitant]
  11. AMITRIPTYLINE HCL [Concomitant]
  12. LIPITOR [Concomitant]
  13. PREVACID [Concomitant]
  14. ROBITUSSIN DM [Concomitant]

REACTIONS (3)
  - PHARYNGEAL OEDEMA [None]
  - PRURITUS [None]
  - URTICARIA [None]
